FAERS Safety Report 10785588 (Version 1)
Quarter: 2015Q1

REPORT INFORMATION
  Report Type: Report from Study
  Country: GB (occurrence: GB)
  Receive Date: 20150211
  Receipt Date: 20150211
  Transmission Date: 20150721
  Serious: Yes (Other)
  Sender: FDA-Public Use
  Company Number: GB-MYLANLABS-2015M1003768

PATIENT

DRUGS (3)
  1. NITROGLYCERIN. [Concomitant]
     Active Substance: NITROGLYCERIN
     Dosage: 500MICROG
     Route: 060
  2. METOPROLOL [Suspect]
     Active Substance: METOPROLOL
     Dosage: RECEIVED 15MG; FROM 5MG AMPULES EVERY 30 SECONDS
     Route: 042
  3. IOPAMIDOL [Concomitant]
     Active Substance: IOPAMIDOL
     Dosage: 75 ML (75.5% WEIGHT/VOLUME IOPAMIDOL EQUIVALENT TO 370MG I/ML) WAS INJECTED AT A RATE OF 5 ML/S.
     Route: 050

REACTIONS (2)
  - Tachycardia [Unknown]
  - Atrioventricular block [Unknown]
